FAERS Safety Report 10487430 (Version 2)
Quarter: 2014Q4

REPORT INFORMATION
  Report Type: Spontaneous
  Country: US (occurrence: US)
  Receive Date: 20141001
  Receipt Date: 20141029
  Transmission Date: 20150528
  Serious: No
  Sender: FDA-Public Use
  Company Number: US-009507513-1409USA005942

PATIENT
  Age: 22 Year
  Sex: Female
  Weight: 102.49 kg

DRUGS (1)
  1. NEXPLANON [Suspect]
     Active Substance: ETONOGESTREL
     Indication: CONTRACEPTION
     Dosage: UNK
     Route: 059
     Dates: start: 20140422

REACTIONS (7)
  - Menorrhagia [Not Recovered/Not Resolved]
  - Device kink [Not Recovered/Not Resolved]
  - Mood swings [Unknown]
  - Paraesthesia [Unknown]
  - Neuralgia [Unknown]
  - Hypoaesthesia [Unknown]
  - Muscle spasms [Unknown]

NARRATIVE: CASE EVENT DATE: 20140810
